FAERS Safety Report 25766354 (Version 1)
Quarter: 2025Q3

REPORT INFORMATION
  Report Type: Spontaneous
  Country: JP (occurrence: JP)
  Receive Date: 20250905
  Receipt Date: 20250905
  Transmission Date: 20251020
  Serious: Yes (Death, Hospitalization, Disabling, Other)
  Sender: ASTELLAS
  Company Number: JP-ASTELLAS-2025-AER-048004

PATIENT
  Age: 86 Year
  Sex: Female
  Weight: 54 kg

DRUGS (10)
  1. PADCEV [Suspect]
     Active Substance: ENFORTUMAB VEDOTIN-EJFV
     Indication: Metastatic carcinoma of the bladder
     Route: 042
     Dates: start: 20241121, end: 20241128
  2. KEYTRUDA [Suspect]
     Active Substance: PEMBROLIZUMAB
     Indication: Bladder cancer
     Route: 065
     Dates: start: 20241121
  3. Xarelto OD 10mg [Concomitant]
     Indication: Product used for unknown indication
     Route: 048
  4. PITAVASTATIN Ca?OD Tablet 1mg [Concomitant]
     Indication: Product used for unknown indication
     Route: 048
  5. Trazenta Tablet 5mg [Concomitant]
     Indication: Product used for unknown indication
     Route: 048
  6. Lansoprazole OD Tablet 15mg [Concomitant]
     Indication: Product used for unknown indication
     Route: 048
  7. SENNOSIDES [Concomitant]
     Active Substance: SENNOSIDES
     Indication: Product used for unknown indication
     Route: 048
  8. Cibenzoline Succinate Tablet 100mg [Concomitant]
     Indication: Product used for unknown indication
     Route: 048
  9. Vasolan Tablet 40mg [Concomitant]
     Indication: Product used for unknown indication
     Route: 048
  10. MIYA-BM Tablet [Concomitant]
     Indication: Product used for unknown indication
     Route: 048

REACTIONS (3)
  - Septic shock [Fatal]
  - Skin disorder [Fatal]
  - Acute kidney injury [Unknown]

NARRATIVE: CASE EVENT DATE: 20241205
